FAERS Safety Report 9066527 (Version 2)
Quarter: 2013Q1

REPORT INFORMATION
  Report Type: Spontaneous
  Country: US (occurrence: US)
  Receive Date: 20130214
  Receipt Date: 20130312
  Transmission Date: 20140127
  Serious: Yes (Hospitalization)
  Sender: FDA-Public Use
  Company Number: US-PFIZER INC-2013057901

PATIENT
  Age: 62 Year
  Sex: Female
  Weight: 80.3 kg

DRUGS (2)
  1. RAPAMUNE [Suspect]
     Indication: LIVER TRANSPLANT
     Dosage: 3 MG, 1X/DAY
  2. AZATHIOPRINE [Concomitant]
     Dosage: 50 MG, 1X/DAY

REACTIONS (4)
  - Local swelling [Recovered/Resolved]
  - Back pain [Recovered/Resolved]
  - Renal pain [Recovered/Resolved]
  - Off label use [Unknown]
